FAERS Safety Report 4749733-8 (Version None)
Quarter: 2005Q3

REPORT INFORMATION
  Report Type: 
  Country: None (occurrence: None)
  Receive Date: 20050822
  Receipt Date: 20050607
  Transmission Date: 20060218
  Serious: Yes (Hospitalization)
  Sender: FDA-Public Use
  Company Number: US-MERCK-0506USA01422

PATIENT
  Age: 52 Year
  Sex: Female
  Weight: 122 kg

DRUGS (9)
  1. VIOXX [Suspect]
     Indication: ARTHRITIS
     Route: 048
     Dates: start: 19991101, end: 20040301
  2. VIOXX [Suspect]
     Route: 048
     Dates: start: 20040301, end: 20040901
  3. DIOVAN [Concomitant]
     Route: 065
     Dates: start: 20001016, end: 20050215
  4. LASIX [Concomitant]
     Route: 065
     Dates: start: 20001017, end: 20050215
  5. LABETALOL HYDROCHLORIDE [Concomitant]
     Route: 065
     Dates: start: 20010111, end: 20050215
  6. ZOCOR [Concomitant]
     Route: 048
     Dates: start: 19990825, end: 20040129
  7. PREMARIN [Concomitant]
     Route: 065
     Dates: start: 20031121, end: 20050310
  8. POTASSIUM (UNSPECIFIED) [Concomitant]
     Route: 065
  9. PRILOSEC [Concomitant]
     Route: 048

REACTIONS (36)
  - ANAEMIA [None]
  - ANGINA UNSTABLE [None]
  - AORTIC VALVE INCOMPETENCE [None]
  - ASTHMA [None]
  - BRONCHITIS [None]
  - CARDIOMEGALY [None]
  - CHEST PAIN [None]
  - CHRONIC OBSTRUCTIVE PULMONARY DISEASE [None]
  - CORONARY ARTERY DISEASE [None]
  - CORYNEBACTERIUM INFECTION [None]
  - CULTURE WOUND POSITIVE [None]
  - DIZZINESS [None]
  - DYSPNOEA [None]
  - FACIAL PARESIS [None]
  - HAEMATOMA [None]
  - HYPERTENSION [None]
  - HYPOAESTHESIA [None]
  - HYSTERECTOMY [None]
  - INFECTION [None]
  - INSOMNIA [None]
  - MENOMETRORRHAGIA [None]
  - MITRAL VALVE INCOMPETENCE [None]
  - MUSCLE SPASMS [None]
  - MYOCARDIAL INFARCTION [None]
  - OEDEMA PERIPHERAL [None]
  - OVARIAN CYST [None]
  - PALPITATIONS [None]
  - PARAESTHESIA [None]
  - SINUS HEADACHE [None]
  - SLEEP APNOEA SYNDROME [None]
  - STAPHYLOCOCCAL INFECTION [None]
  - TACHYCARDIA [None]
  - UTERINE ENLARGEMENT [None]
  - UTERINE LEIOMYOMA [None]
  - VASCULAR PSEUDOANEURYSM [None]
  - VENOUS INSUFFICIENCY [None]
